FAERS Safety Report 14094213 (Version 1)
Quarter: 2017Q4

REPORT INFORMATION
  Report Type: Spontaneous
  Country: US (occurrence: US)
  Receive Date: 20171016
  Receipt Date: 20171016
  Transmission Date: 20180321
  Serious: No
  Sender: FDA-Public Use
  Company Number: US-SUNOVION-2017SUN004298

PATIENT
  Sex: Female

DRUGS (1)
  1. BROVANA [Suspect]
     Active Substance: ARFORMOTEROL TARTRATE
     Dosage: UNKNOWN
     Route: 055

REACTIONS (4)
  - Breast pain [Unknown]
  - Pain in extremity [Unknown]
  - Exposure to toxic agent [Unknown]
  - Back pain [Unknown]
